FAERS Safety Report 9339394 (Version 1)
Quarter: 2013Q2

REPORT INFORMATION
  Report Type: Spontaneous
  Country: US (occurrence: None)
  Receive Date: 20130607
  Receipt Date: 20130607
  Transmission Date: 20140414
  Serious: Yes (Death, Life-Threatening, Other)
  Sender: FDA-Public Use
  Company Number: None

PATIENT
  Age: 77 Year
  Sex: Male

DRUGS (1)
  1. SUTENT [Suspect]
     Dates: start: 20120727, end: 20120816

REACTIONS (5)
  - Blood sodium decreased [None]
  - Asthenia [None]
  - Bedridden [None]
  - Metastases to liver [None]
  - Immune system disorder [None]
